FAERS Safety Report 15856954 (Version 1)
Quarter: 2019Q1

REPORT INFORMATION
  Report Type: Spontaneous
  Country: US (occurrence: US)
  Receive Date: 20190122
  Receipt Date: 20190122
  Transmission Date: 20190417
  Serious: No
  Sender: FDA-Public Use
  Company Number: None

PATIENT
  Age: 55 Year
  Sex: Female
  Weight: 107.14 kg

DRUGS (11)
  1. TYKERB [Suspect]
     Active Substance: LAPATINIB DITOSYLATE
     Indication: BREAST CANCER FEMALE
     Route: 048
     Dates: start: 20181022, end: 20190122
  2. CAPECITABINE. [Suspect]
     Active Substance: CAPECITABINE
     Indication: BREAST CANCER FEMALE
     Route: 048
     Dates: start: 20181022, end: 20190122
  3. VITAMIN C [Concomitant]
     Active Substance: ASCORBIC ACID
  4. FERROUS SULFATE. [Concomitant]
     Active Substance: FERROUS SULFATE
  5. CALCIUM + D [Concomitant]
     Active Substance: CALCIUM\VITAMIN D
  6. LORAZEPAM. [Concomitant]
     Active Substance: LORAZEPAM
  7. PROCHLORPERAZINE. [Concomitant]
     Active Substance: PROCHLORPERAZINE
  8. HYDROMORPHONE [Concomitant]
     Active Substance: HYDROMORPHONE
  9. POTASSIUM CHLORIDE ER [Concomitant]
     Active Substance: POTASSIUM CHLORIDE
  10. GABAPENTIN. [Concomitant]
     Active Substance: GABAPENTIN
  11. CALCITONIN [Concomitant]
     Active Substance: CALCITONIN

REACTIONS (2)
  - Nausea [None]
  - Asthenia [None]
